FAERS Safety Report 8327877-1 (Version None)
Quarter: 2012Q2

REPORT INFORMATION
  Report Type: 
  Country: None (occurrence: None)
  Receive Date: 20120502
  Receipt Date: 20120420
  Transmission Date: 20120825
  Serious: Yes (Other)
  Sender: FDA-Public Use
  Company Number: US-JNJFOC-20120410134

PATIENT
  Sex: Female
  Weight: 52.62 kg

DRUGS (4)
  1. ENTOCORT EC [Concomitant]
     Indication: COLITIS ULCERATIVE
     Route: 048
     Dates: start: 20111201, end: 20120301
  2. ASACOL [Concomitant]
     Indication: COLITIS ULCERATIVE
     Route: 048
     Dates: start: 20110601
  3. MESALAMINE ENEMA [Concomitant]
     Indication: COLITIS ULCERATIVE
     Route: 054
     Dates: start: 20111201
  4. REMICADE [Suspect]
     Indication: COLITIS ULCERATIVE
     Route: 042
     Dates: start: 20120101

REACTIONS (8)
  - WEIGHT DECREASED [None]
  - THERAPEUTIC RESPONSE DECREASED [None]
  - INADEQUATE DIET [None]
  - FAECES HARD [None]
  - RASH PUSTULAR [None]
  - FREQUENT BOWEL MOVEMENTS [None]
  - EMOTIONAL DISORDER [None]
  - RECTAL HAEMORRHAGE [None]
